FAERS Safety Report 7558356-7 (Version None)
Quarter: 2011Q2

REPORT INFORMATION
  Report Type: 
  Country: None (occurrence: None)
  Receive Date: 20110620
  Receipt Date: 20110610
  Transmission Date: 20111010
  Serious: Yes (Hospitalization, Other)
  Sender: FDA-Public Use
  Company Number: US-ASTRAZENECA-2010SE61453

PATIENT
  Age: 64 Year
  Sex: Female

DRUGS (1)
  1. NEXIUM [Suspect]
     Route: 048

REACTIONS (5)
  - CHEST DISCOMFORT [None]
  - DRUG DOSE OMISSION [None]
  - DIABETES MELLITUS [None]
  - HERNIA HIATUS REPAIR [None]
  - CHOLECYSTECTOMY [None]
